FAERS Safety Report 9257526 (Version 2)
Quarter: 2013Q2

REPORT INFORMATION
  Report Type: Spontaneous
  Country: DE (occurrence: None)
  Receive Date: 20130422
  Receipt Date: 20130521
  Transmission Date: 20140414
  Serious: Yes (Other)
  Sender: FDA-Public Use
  Company Number: GER/GER/13/0029024

PATIENT
  Age: 70 Year
  Sex: Female
  Weight: 63 kg

DRUGS (2)
  1. SIMVABETA [Suspect]
     Indication: BLOOD CHOLESTEROL INCREASED
     Dosage: 10MG, 1 IN 1 D, ORAL
     Route: 048
     Dates: start: 201009, end: 20121217
  2. ARIMIDEX (ANASTROZOLE) [Concomitant]

REACTIONS (12)
  - Pain in extremity [None]
  - Movement disorder [None]
  - Hypoaesthesia [None]
  - Muscle disorder [None]
  - Polyneuropathy [None]
  - Aspartate aminotransferase increased [None]
  - Back pain [None]
  - Blood cholesterol increased [None]
  - Kyphosis [None]
  - Tachycardia [None]
  - Dyspnoea [None]
  - Spinal pain [None]
